FAERS Safety Report 6947603-8 (Version None)
Quarter: 2010Q3

REPORT INFORMATION
  Report Type: 
  Country: None (occurrence: None)
  Receive Date: 20100828
  Receipt Date: 20090922
  Transmission Date: 20110219
  Serious: No
  Sender: FDA-Public Use
  Company Number: US-ABBOTT-09P-163-0599159-00

PATIENT
  Sex: Male
  Weight: 76.272 kg

DRUGS (5)
  1. NIASPAN [Suspect]
     Indication: HIGH DENSITY LIPOPROTEIN DECREASED
     Route: 048
     Dates: start: 20090919
  2. ASCORBIC ACID [Concomitant]
     Indication: VITAMIN SUPPLEMENTATION
  3. VITAMIN D [Concomitant]
     Indication: VITAMIN SUPPLEMENTATION
  4. VITAMIN B-12 [Concomitant]
     Indication: VITAMIN SUPPLEMENTATION
  5. ASPIRIN [Concomitant]
     Indication: PRODUCT USED FOR UNKNOWN INDICATION

REACTIONS (3)
  - FLUSHING [None]
  - FORMICATION [None]
  - PRURITUS [None]
